FAERS Safety Report 22352859 (Version 1)
Quarter: 2023Q2

REPORT INFORMATION
  Report Type: Spontaneous
  Country: MY (occurrence: MY)
  Receive Date: 20230523
  Receipt Date: 20230523
  Transmission Date: 20230722
  Serious: Yes (Hospitalization, Other)
  Sender: FDA-Public Use
  Company Number: MY-002147023-NVSC2023MY114692

PATIENT
  Age: 52 Year
  Sex: Female

DRUGS (1)
  1. NILOTINIB [Suspect]
     Active Substance: NILOTINIB
     Indication: Chronic myeloid leukaemia
     Dosage: 400 MG, BID
     Route: 065
     Dates: start: 20230411

REACTIONS (8)
  - Hyperglycaemia [Unknown]
  - Diabetes mellitus inadequate control [Unknown]
  - Skin mass [Unknown]
  - Decreased appetite [Unknown]
  - Weight decreased [Unknown]
  - Pruritus [Unknown]
  - Rash [Unknown]
  - Lethargy [Unknown]
